FAERS Safety Report 15391389 (Version 1)
Quarter: 2020Q3

REPORT INFORMATION
  Report Type: Spontaneous
  Country: FR (occurrence: FR)
  Receive Date: 20180917
  Receipt Date: 20180917
  Transmission Date: 20201105
  Serious: Yes (Hospitalization)
  Sender: FDA-Public Use
  Company Number: IND-FR-009507513-1809FRA001497

PATIENT
  Age: 31 Year
  Sex: Female

DRUGS (4)
  1. OVITRELLE [Suspect]
     Active Substance: CHORIOGONADOTROPIN ALFA
     Indication: OVULATION INDUCTION
     Dosage: IN TOTAL
     Route: 058
     Dates: start: 20180222, end: 20180222
  2. CETROTIDE [Suspect]
     Active Substance: CETRORELIX ACETATE
     Indication: CONTROLLED OVARIAN STIMULATION
     Dosage: 0.25 MG, QD
     Route: 058
     Dates: start: 20170219, end: 20170221
  3. ELONVA [Suspect]
     Active Substance: CORIFOLLITROPIN ALFA
     Indication: CONTROLLED OVARIAN STIMULATION
     Dosage: IN TOTAL
     Route: 058
     Dates: start: 20170212, end: 20170212
  4. GONAL?F [Suspect]
     Active Substance: FOLLITROPIN
     Indication: CONTROLLED OVARIAN STIMULATION
     Dosage: 125 IU, QD
     Route: 058
     Dates: start: 20170219, end: 20170221

REACTIONS (2)
  - Ovarian hyperstimulation syndrome [Recovered/Resolved]
  - Effusion [Recovered/Resolved]

NARRATIVE: CASE EVENT DATE: 20170224
